FAERS Safety Report 18431121 (Version 1)
Quarter: 2020Q4

REPORT INFORMATION
  Report Type: Spontaneous
  Country: US (occurrence: US)
  Receive Date: 20201027
  Receipt Date: 20201027
  Transmission Date: 20210114
  Serious: Yes (Hospitalization)
  Sender: FDA-Public Use
  Company Number: None

PATIENT
  Age: 74 Year
  Sex: Male

DRUGS (1)
  1. APIXABAN (APIXABAN 5MG TAB) [Suspect]
     Active Substance: APIXABAN
     Indication: ATRIAL FIBRILLATION
     Route: 048
     Dates: start: 20151218, end: 20200910

REACTIONS (10)
  - Blood pressure systolic decreased [None]
  - Gastrointestinal haemorrhage [None]
  - Gastric ulcer haemorrhage [None]
  - Haematemesis [None]
  - Ulcer haemorrhage [None]
  - Haemoglobin decreased [None]
  - Syncope [None]
  - Melaena [None]
  - Blood pressure decreased [None]
  - Haemodynamic instability [None]

NARRATIVE: CASE EVENT DATE: 20200910
